FAERS Safety Report 21802796 (Version 1)
Quarter: 2022Q4

REPORT INFORMATION
  Report Type: Spontaneous
  Country: US (occurrence: US)
  Receive Date: 20221231
  Receipt Date: 20221231
  Transmission Date: 20230112
  Serious: No
  Sender: FDA-Public Use
  Company Number: US-ELI_LILLY_AND_COMPANY-US202212012057

PATIENT
  Sex: Male

DRUGS (1)
  1. TALTZ [Suspect]
     Active Substance: IXEKIZUMAB
     Indication: Ankylosing spondylitis
     Dosage: 160 MG, OTHER, LOADING DOSE, TWO INJECTIONS OF 80 MG
     Route: 058

REACTIONS (3)
  - Incorrect dose administered [Unknown]
  - Injection site mass [Unknown]
  - Injection site haemorrhage [Unknown]
